FAERS Safety Report 16255365 (Version 2)
Quarter: 2019Q2

REPORT INFORMATION
  Report Type: Spontaneous
  Country: ZA (occurrence: ZA)
  Receive Date: 20190430
  Receipt Date: 20190603
  Transmission Date: 20190711
  Serious: Yes (Other)
  Sender: FDA-Public Use
  Company Number: ZA-009507513-1904ZAF011156

PATIENT
  Age: 75 Year
  Sex: Female

DRUGS (1)
  1. EZETROL 10MG [Suspect]
     Active Substance: EZETIMIBE
     Dosage: UNK
     Route: 048
     Dates: start: 20190322

REACTIONS (3)
  - Constipation [Unknown]
  - Haematochezia [Unknown]
  - Alopecia [Not Recovered/Not Resolved]

NARRATIVE: CASE EVENT DATE: 2019
